FAERS Safety Report 16454199 (Version 2)
Quarter: 2019Q2

REPORT INFORMATION
  Report Type: Spontaneous
  Country: FR (occurrence: FR)
  Receive Date: 20190619
  Receipt Date: 20190626
  Transmission Date: 20190711
  Serious: Yes (Hospitalization)
  Sender: FDA-Public Use
  Company Number: FR-ELI_LILLY_AND_COMPANY-FR201906007916

PATIENT
  Age: 69 Year
  Sex: Male
  Weight: 79 kg

DRUGS (6)
  1. ERBITUX [Suspect]
     Active Substance: CETUXIMAB
     Indication: SQUAMOUS CELL CARCINOMA
     Dosage: UNK, UNKNOWN
     Route: 041
     Dates: start: 20190308, end: 20190308
  2. ERBITUX [Suspect]
     Active Substance: CETUXIMAB
     Dosage: UNK, UNKNOWN
     Route: 041
  3. METHYLPREDNISOLONE MYLAN [METHYLPREDNISOLONE HEMISUCCINATE] [Suspect]
     Active Substance: METHYLPREDNISOLONE HEMISUCCINATE
     Indication: PREMEDICATION
     Dosage: 60 MG, DAILY
     Route: 042
     Dates: start: 20190308, end: 20190308
  4. ONDANSETRON ACCORD [Concomitant]
     Active Substance: ONDANSETRON
     Indication: PREMEDICATION
     Dosage: 8 MG, DAILY
     Route: 042
     Dates: start: 20190308, end: 20190308
  5. POLARAMINE [Concomitant]
     Active Substance: DEXCHLORPHENIRAMINE MALEATE
     Indication: PREMEDICATION
     Dosage: 1 DOSAGE FORM, DAILY
     Route: 042
     Dates: start: 20190308, end: 20190308
  6. AZANTAC [Concomitant]
     Active Substance: RANITIDINE HYDROCHLORIDE
     Indication: PREMEDICATION
     Dosage: 25 MG, DAILY
     Route: 042
     Dates: start: 20190308, end: 20190308

REACTIONS (3)
  - Hyperhidrosis [Recovered/Resolved]
  - Hypovolaemic shock [Recovered/Resolved]
  - Infusion related reaction [Recovered/Resolved]

NARRATIVE: CASE EVENT DATE: 20190308
